FAERS Safety Report 8819842 (Version 1)
Quarter: 2012Q4

REPORT INFORMATION
  Report Type: Report from Study
  Country: FR (occurrence: FR)
  Receive Date: 20121001
  Receipt Date: 20121001
  Transmission Date: 20130627
  Serious: Yes (Hospitalization)
  Sender: FDA-Public Use
  Company Number: FR-ROCHE-1132574

PATIENT
  Age: 71 Year
  Sex: Female
  Weight: 52 kg

DRUGS (19)
  1. ROACTEMRA [Suspect]
     Indication: RHEUMATOID ARTHRITIS
     Route: 042
     Dates: start: 20110314
  2. ROACTEMRA [Suspect]
     Route: 042
     Dates: start: 20110412
  3. ROACTEMRA [Suspect]
     Route: 042
     Dates: start: 20110509
  4. ROACTEMRA [Suspect]
     Route: 042
     Dates: start: 20110609
  5. ROACTEMRA [Suspect]
     Route: 042
     Dates: start: 20111010
  6. ROACTEMRA [Suspect]
     Route: 042
     Dates: start: 20111108
  7. ROACTEMRA [Suspect]
     Route: 042
     Dates: start: 20111206
  8. ROACTEMRA [Suspect]
     Route: 042
     Dates: start: 20120103
  9. ROACTEMRA [Suspect]
     Route: 042
     Dates: start: 20120131
  10. CORTANCYL [Concomitant]
     Route: 065
     Dates: start: 20110314
  11. CORTANCYL [Concomitant]
     Route: 065
     Dates: start: 20110412
  12. CORTANCYL [Concomitant]
     Route: 065
     Dates: start: 20110609
  13. CORTANCYL [Concomitant]
     Route: 065
     Dates: start: 20110509
  14. IXPRIM [Concomitant]
     Dosage: 3 per day
     Route: 065
  15. INEXIUM [Concomitant]
     Dosage: 40
     Route: 065
  16. NEBILOX [Concomitant]
     Route: 065
  17. HYDROCORTISONE [Concomitant]
     Route: 065
  18. TAHOR [Concomitant]
  19. OPTRUMA [Concomitant]
     Dosage: 60
     Route: 065

REACTIONS (7)
  - Pelvic fracture [Recovered/Resolved]
  - Joint dislocation [Recovered/Resolved]
  - Wrist fracture [Recovered/Resolved]
  - Forearm fracture [Recovered/Resolved]
  - Aphonia [Recovered/Resolved]
  - Eczema [Recovered/Resolved]
  - Ulcer [Recovered/Resolved]
